FAERS Safety Report 10149746 (Version 1)
Quarter: 2014Q2

REPORT INFORMATION
  Report Type: Spontaneous
  Country: NL (occurrence: None)
  Receive Date: 20140430
  Receipt Date: 20140430
  Transmission Date: 20141212
  Serious: Yes (Life-Threatening)
  Sender: FDA-Public Use
  Company Number: B0987903A

PATIENT
  Age: 38 Year
  Sex: Female
  Weight: 79.83 kg

DRUGS (2)
  1. PAROXETINE HYDROCHLORIDE (FORMULATION UNKNOWN) (PAROXETINE HYDROCHLORIDE) [Suspect]
     Indication: DEPRESSION
     Route: 048
     Dates: start: 2004
  2. ZOLPIDEM [Concomitant]

REACTIONS (2)
  - Suicidal ideation [None]
  - Aggression [None]
